FAERS Safety Report 6444890-X (Version None)
Quarter: 2009Q4

REPORT INFORMATION
  Report Type: 
  Country: None (occurrence: None)
  Receive Date: 20091118
  Receipt Date: 20091112
  Transmission Date: 20100525
  Serious: Yes (Hospitalization)
  Sender: FDA-Public Use
  Company Number: GXKR2009ES11940

PATIENT
  Age: 33 Year
  Sex: Female

DRUGS (5)
  1. DIAZEPAM [Suspect]
     Indication: DEPRESSION
     Dosage: 10 MG, TID
     Route: 065
  2. DIAZEPAM [Suspect]
     Indication: FIBROMYALGIA
     Dosage: LARGER QUANTITIES
  3. LORMETAZEPAM (NGX) [Suspect]
     Indication: DEPRESSION
     Dosage: 2 MG/DAY
     Route: 065
  4. LORMETAZEPAM (NGX) [Suspect]
     Indication: FIBROMYALGIA
     Dosage: LARGER QUANTITIES
  5. CITALOPRAM HYDROBROMIDE [Concomitant]
     Dosage: 30 MG/DAY
     Route: 065

REACTIONS (27)
  - ANXIETY [None]
  - DECREASED APPETITE [None]
  - DEPRESSION [None]
  - DISORIENTATION [None]
  - DIZZINESS [None]
  - DRUG ABUSE [None]
  - DRUG DEPENDENCE [None]
  - DYSARTHRIA [None]
  - DYSTHYMIC DISORDER [None]
  - EYELID PTOSIS [None]
  - FATIGUE [None]
  - GAIT DISTURBANCE [None]
  - HYPERHIDROSIS [None]
  - HYPOKINESIA [None]
  - HYPOPHAGIA [None]
  - INFLUENZA LIKE ILLNESS [None]
  - INSOMNIA [None]
  - IRRITABILITY [None]
  - MIOSIS [None]
  - PALPITATIONS [None]
  - PARAESTHESIA [None]
  - PHOTOPHOBIA [None]
  - SINUS TACHYCARDIA [None]
  - SOMNOLENCE [None]
  - SUICIDAL IDEATION [None]
  - TACHYARRHYTHMIA [None]
  - WITHDRAWAL SYNDROME [None]
